FAERS Safety Report 23854588 (Version 3)
Quarter: 2024Q2

REPORT INFORMATION
  Report Type: Spontaneous
  Country: US (occurrence: US)
  Receive Date: 20240514
  Receipt Date: 20240612
  Transmission Date: 20240716
  Serious: No
  Sender: FDA-Public Use
  Company Number: US-Blueprint Medicines Corporation-3489

PATIENT
  Sex: Female

DRUGS (3)
  1. AYVAKIT [Suspect]
     Active Substance: AVAPRITINIB
     Indication: Systemic mastocytosis
     Route: 048
     Dates: start: 20240430
  2. AYVAKIT [Suspect]
     Active Substance: AVAPRITINIB
     Indication: Indolent systemic mastocytosis
  3. BENADRYL [Concomitant]
     Active Substance: DIPHENHYDRAMINE HYDROCHLORIDE
     Indication: Nausea
     Route: 065

REACTIONS (8)
  - Feeling abnormal [Unknown]
  - Skin disorder [Unknown]
  - Blister [Unknown]
  - Condition aggravated [Unknown]
  - Nausea [Not Recovered/Not Resolved]
  - Memory impairment [Unknown]
  - Cognitive disorder [Unknown]
  - Dizziness [Unknown]
